FAERS Safety Report 12530009 (Version 1)
Quarter: 2016Q3

REPORT INFORMATION
  Report Type: Spontaneous
  Country: US (occurrence: None)
  Receive Date: 20160705
  Receipt Date: 20160705
  Transmission Date: 20161109
  Serious: Yes (Hospitalization)
  Sender: FDA-Public Use
  Company Number: None

PATIENT
  Age: 85 Year
  Sex: Female

DRUGS (3)
  1. OXCARBAZEPINE, 150MG ROXANE [Suspect]
     Active Substance: OXCARBAZEPINE
     Indication: SEIZURE
     Dosage: 675 MG VARIED DOSE ORAL
     Route: 048
     Dates: start: 20160511, end: 20160531
  2. LEVOTHYROXINE. [Concomitant]
     Active Substance: LEVOTHYROXINE
  3. OLANZAPINE. [Concomitant]
     Active Substance: OLANZAPINE

REACTIONS (2)
  - Product measured potency issue [None]
  - Seizure [None]

NARRATIVE: CASE EVENT DATE: 20160531
